FAERS Safety Report 25967156 (Version 1)
Quarter: 2025Q4

REPORT INFORMATION
  Report Type: Spontaneous
  Country: EU (occurrence: EU)
  Receive Date: 20251028
  Receipt Date: 20251028
  Transmission Date: 20260117
  Serious: Yes (Death, Other)
  Sender: NOSTRUM PHARMACEUTICALS LLC
  Company Number: EU-NP-2025-3851-LIT-42

PATIENT

DRUGS (12)
  1. VENLAFAXINE [Suspect]
     Active Substance: VENLAFAXINE HYDROCHLORIDE
     Indication: Depression
  2. PROPOFOL [Suspect]
     Active Substance: PROPOFOL
  3. CLONAZEPAM [Suspect]
     Active Substance: CLONAZEPAM
  4. ALPRAZOLAM [Suspect]
     Active Substance: ALPRAZOLAM
  5. DIAZEPAM [Suspect]
     Active Substance: DIAZEPAM
  6. ZOLPIDEM [Suspect]
     Active Substance: ZOLPIDEM TARTRATE
  7. FENTANYL [Suspect]
     Active Substance: FENTANYL
  8. MORPHINE [Suspect]
     Active Substance: MORPHINE
  9. METHADONE [Suspect]
     Active Substance: METHADONE HYDROCHLORIDE
  10. NAPROXEN [Concomitant]
     Active Substance: NAPROXEN
  11. ONDANSETRON [Concomitant]
     Active Substance: ONDANSETRON
  12. METOCLOPRAMIDE [Concomitant]
     Active Substance: METOCLOPRAMIDE

REACTIONS (2)
  - Drug interaction [Fatal]
  - Non-cardiogenic pulmonary oedema [Fatal]
